FAERS Safety Report 5152660-8 (Version None)
Quarter: 2006Q4

REPORT INFORMATION
  Report Type: 
  Country: None (occurrence: None)
  Receive Date: 20061109
  Receipt Date: 20061024
  Transmission Date: 20070319
  Serious: Yes (Hospitalization)
  Sender: FDA-Public Use
  Company Number: 2006132422

PATIENT
  Age: 56 Year
  Sex: Male

DRUGS (1)
  1. BENADRYL [Suspect]
     Dosage: 2 PILLS ONCE, ORAL
     Route: 048

REACTIONS (1)
  - DRUG HYPERSENSITIVITY [None]
